FAERS Safety Report 21732958 (Version 1)
Quarter: 2022Q4

REPORT INFORMATION
  Report Type: Spontaneous
  Country: US (occurrence: US)
  Receive Date: 20221215
  Receipt Date: 20221215
  Transmission Date: 20230113
  Serious: No
  Sender: FDA-Public Use
  Company Number: US-SA-SAC20221212001408

PATIENT
  Sex: Female

DRUGS (1)
  1. DUPIXENT [Suspect]
     Active Substance: DUPILUMAB
     Indication: Dermatitis
     Dosage: 300 MG, QOW
     Route: 058

REACTIONS (10)
  - Infected skin ulcer [Unknown]
  - Headache [Unknown]
  - Neurodermatitis [Unknown]
  - Anxiety [Unknown]
  - Scab [Unknown]
  - Vision blurred [Unknown]
  - Eye pruritus [Unknown]
  - Rash [Unknown]
  - Product use in unapproved indication [Unknown]
  - Drug ineffective [Unknown]
